FAERS Safety Report 17286387 (Version 1)
Quarter: 2020Q1

REPORT INFORMATION
  Report Type: Spontaneous
  Country: US (occurrence: US)
  Receive Date: 20200118
  Receipt Date: 20200118
  Transmission Date: 20200409
  Serious: Yes (Life-Threatening, Hospitalization, Disabling, Other)
  Sender: FDA-Public Use
  Company Number: US-TORRENT-00009608

PATIENT
  Age: 37 Year
  Sex: Female

DRUGS (1)
  1. MINOCYCLINE [Suspect]
     Active Substance: MINOCYCLINE HYDROCHLORIDE
     Indication: ACNE
     Dosage: UNKNOWN
     Dates: start: 201505

REACTIONS (17)
  - Cardiogenic shock [Recovered/Resolved]
  - Myelitis transverse [Unknown]
  - Wheelchair user [Unknown]
  - Ejection fraction decreased [Recovered/Resolved]
  - Peroneal nerve palsy [Unknown]
  - Paraplegia [Not Recovered/Not Resolved]
  - Pneumonitis [Unknown]
  - Cardiac failure congestive [Recovered/Resolved]
  - VIth nerve paralysis [Unknown]
  - Nervous system disorder [Unknown]
  - Diplopia [Recovered/Resolved]
  - Urinary retention [Recovered/Resolved]
  - Rhabdomyolysis [Recovered/Resolved]
  - Drug reaction with eosinophilia and systemic symptoms [Unknown]
  - Eosinophilic myocarditis [Recovered/Resolved]
  - Gait disturbance [Recovered/Resolved with Sequelae]
  - Acute motor axonal neuropathy [Unknown]

NARRATIVE: CASE EVENT DATE: 2015
